FAERS Safety Report 12074234 (Version 2)
Quarter: 2016Q1

REPORT INFORMATION
  Report Type: Spontaneous
  Country: JP (occurrence: JP)
  Receive Date: 20160212
  Receipt Date: 20160311
  Transmission Date: 20160526
  Serious: Yes (Hospitalization, Other)
  Sender: FDA-Public Use
  Company Number: JP-ELI_LILLY_AND_COMPANY-JP201602003137

PATIENT
  Age: 62 Year
  Sex: Male
  Weight: 77 kg

DRUGS (11)
  1. PACLITAXEL. [Suspect]
     Active Substance: PACLITAXEL
     Dosage: 60 MG/M2, WEEKLY (1/W)
     Route: 065
     Dates: start: 20150602, end: 20160112
  2. TRAMAL [Concomitant]
     Active Substance: TRAMADOL
     Indication: CANCER PAIN
     Dosage: 50 MG, QID
     Route: 048
  3. AMLODIPINE [Concomitant]
     Active Substance: AMLODIPINE BESYLATE
     Indication: HYPERTENSION
     Dosage: 10 MG, QD
     Route: 048
  4. FAMOTIDINE. [Concomitant]
     Active Substance: FAMOTIDINE
     Indication: ABDOMINAL PAIN UPPER
     Dosage: 20 MG, QD
     Route: 048
  5. ERBITUX [Suspect]
     Active Substance: CETUXIMAB
     Indication: HYPOPHARYNGEAL CANCER
     Dosage: UNK UNK, WEEKLY (1/W)
     Route: 042
     Dates: start: 2014
  6. ATENOLOL. [Concomitant]
     Active Substance: ATENOLOL
     Indication: HYPERTENSION
     Dosage: 50 MG, QD
     Route: 048
  7. ERBITUX [Suspect]
     Active Substance: CETUXIMAB
     Dosage: 250 MG/M2, WEEKLY (1/W)
     Route: 042
     Dates: start: 20150512, end: 20160112
  8. MINOMYCIN [Concomitant]
     Active Substance: MINOCYCLINE HYDROCHLORIDE
     Indication: SKIN DISORDER
     Dosage: 100 MG, BID
     Route: 048
  9. PACLITAXEL. [Suspect]
     Active Substance: PACLITAXEL
     Indication: HYPOPHARYNGEAL CANCER
     Dosage: 80 MG/M2, WEEKLY (1/W)
     Route: 065
     Dates: start: 20150512, end: 20150525
  10. LOXOPROFEN [Concomitant]
     Active Substance: LOXOPROFEN
     Indication: CANCER PAIN
     Dosage: 60 MG, TID
     Route: 048
  11. MAGMITT [Concomitant]
     Active Substance: MAGNESIUM OXIDE
     Indication: CONSTIPATION
     Dosage: 660 MG, BID
     Route: 048

REACTIONS (5)
  - Stomatitis [Unknown]
  - Interstitial lung disease [Unknown]
  - Faeces hard [Unknown]
  - Radiation skin injury [Unknown]
  - Bone marrow failure [Unknown]

NARRATIVE: CASE EVENT DATE: 20150526
